FAERS Safety Report 5904366-2 (Version None)
Quarter: 2008Q4

REPORT INFORMATION
  Report Type: 
  Country: None (occurrence: None)
  Receive Date: 20081001
  Receipt Date: 20080924
  Transmission Date: 20090506
  Serious: Yes (Other)
  Sender: FDA-Public Use
  Company Number: PHHY2008FR20764

PATIENT
  Sex: Female

DRUGS (8)
  1. EXFORGE [Suspect]
     Dosage: 160/5 MG PER DAY
     Dates: start: 20080102
  2. CRESTOR [Concomitant]
     Indication: HYPERCHOLESTEROLAEMIA
  3. ATENOLOL [Concomitant]
  4. FLECAINE [Concomitant]
  5. DEROXAT [Concomitant]
     Dosage: 1 DF, QD
  6. ISKEDYL [Concomitant]
     Dosage: 1 DF, QD
  7. LEVOTHYROX [Concomitant]
     Dosage: 125 UG, DAILY
  8. NORDAZ [Concomitant]
     Dosage: 0.5 DF, DAILY

REACTIONS (4)
  - ARTHRALGIA [None]
  - MYALGIA [None]
  - OEDEMA PERIPHERAL [None]
  - WEIGHT INCREASED [None]
